FAERS Safety Report 20213036 (Version 1)
Quarter: 2021Q4

REPORT INFORMATION
  Report Type: Spontaneous
  Country: US (occurrence: US)
  Receive Date: 20211221
  Receipt Date: 20211221
  Transmission Date: 20220303
  Serious: No
  Sender: FDA-Public Use
  Company Number: US-SANOFI-00893329

PATIENT
  Age: 9 Year
  Sex: Male

DRUGS (3)
  1. DUPIXENT [Suspect]
     Active Substance: DUPILUMAB
     Indication: Eczema
     Dosage: 200 MG, QOW
  2. ZYRTEC [Concomitant]
     Active Substance: CETIRIZINE HYDROCHLORIDE
     Indication: Pruritus
  3. TRIAMCINOLONE [Concomitant]
     Active Substance: TRIAMCINOLONE

REACTIONS (10)
  - Malaise [Unknown]
  - Pallor [Unknown]
  - Skin exfoliation [Unknown]
  - Skin mass [Unknown]
  - Pruritus [Unknown]
  - Eye contusion [Unknown]
  - Dry skin [Unknown]
  - Rash [Unknown]
  - Urticaria [Unknown]
  - Eczema [Unknown]
